FAERS Safety Report 17375197 (Version 1)
Quarter: 2020Q1

REPORT INFORMATION
  Report Type: Spontaneous
  Country: US (occurrence: US)
  Receive Date: 20200204
  Receipt Date: 20200204
  Transmission Date: 20200409
  Serious: No
  Sender: FDA-Public Use
  Company Number: None

PATIENT
  Age: 40 Year
  Sex: Female
  Weight: 108 kg

DRUGS (6)
  1. GUANFACINE HCL [Concomitant]
     Active Substance: GUANFACINE HYDROCHLORIDE
  2. LORAZEPAM 0.5 MG [Concomitant]
     Active Substance: LORAZEPAM
  3. VIIBRYD [Suspect]
     Active Substance: VILAZODONE HYDROCHLORIDE
     Indication: MAJOR DEPRESSION
     Dosage: ?          QUANTITY:1 TABLET(S);?
     Route: 048
     Dates: start: 20200111, end: 20200204
  4. TYLENOL 1000 MG [Concomitant]
  5. VIIBRYD [Suspect]
     Active Substance: VILAZODONE HYDROCHLORIDE
     Indication: ANXIETY
     Dosage: ?          QUANTITY:1 TABLET(S);?
     Route: 048
     Dates: start: 20200111, end: 20200204
  6. IBUPROFEN 600 MG [Concomitant]
     Active Substance: IBUPROFEN

REACTIONS (5)
  - Homicidal ideation [None]
  - Violence-related symptom [None]
  - Irritability [None]
  - Anger [None]
  - Screaming [None]

NARRATIVE: CASE EVENT DATE: 20200121
